FAERS Safety Report 5648569-3 (Version None)
Quarter: 2008Q1

REPORT INFORMATION
  Report Type: 
  Country: None (occurrence: None)
  Receive Date: 20080304
  Receipt Date: 20080303
  Transmission Date: 20080703
  Serious: Yes (Other)
  Sender: FDA-Public Use
  Company Number: A0712904A

PATIENT
  Sex: Female

DRUGS (1)
  1. ALLI [Suspect]
     Indication: WEIGHT DECREASED

REACTIONS (3)
  - PEAU D'ORANGE [None]
  - SKIN ATROPHY [None]
  - WEIGHT FLUCTUATION [None]
